FAERS Safety Report 18290379 (Version 1)
Quarter: 2020Q3

REPORT INFORMATION
  Report Type: Other
  Country: CA (occurrence: CA)
  Receive Date: 20200921
  Receipt Date: 20200921
  Transmission Date: 20201103
  Serious: Yes (Other)
  Sender: FDA-Public Use
  Company Number: CA-APOTEX-2020AP018137

PATIENT
  Age: 35 Year
  Sex: Female

DRUGS (5)
  1. AMIODARONE [Suspect]
     Active Substance: AMIODARONE
     Indication: TACHYCARDIA
  2. SOTALOL. [Suspect]
     Active Substance: SOTALOL
     Indication: TACHYCARDIA
  3. ADENOSINE. [Suspect]
     Active Substance: ADENOSINE
     Indication: VENTRICULAR TACHYCARDIA
     Route: 042
  4. SOTALOL. [Suspect]
     Active Substance: SOTALOL
     Indication: VENTRICULAR TACHYCARDIA
     Route: 065
  5. AMIODARONE [Suspect]
     Active Substance: AMIODARONE
     Indication: VENTRICULAR TACHYCARDIA
     Route: 065

REACTIONS (3)
  - Drug ineffective [Recovering/Resolving]
  - Maternal exposure during pregnancy [Unknown]
  - Exposure during pregnancy [Recovering/Resolving]
